FAERS Safety Report 7368012-6 (Version None)
Quarter: 2011Q1

REPORT INFORMATION
  Report Type: 
  Country: None (occurrence: None)
  Receive Date: 20110322
  Receipt Date: 20110311
  Transmission Date: 20110831
  Serious: Yes (Other)
  Sender: FDA-Public Use
  Company Number: JP-BAYER-2011-022644

PATIENT
  Sex: Male
  Weight: 48 kg

DRUGS (8)
  1. MITIGLINIDE [Interacting]
     Indication: DIABETES MELLITUS
     Dosage: 10 MG, TID
     Route: 048
     Dates: start: 20070201, end: 20110211
  2. PASIL [Concomitant]
     Dosage: UNK
     Route: 041
     Dates: start: 20110204, end: 20110204
  3. TIENAM [Concomitant]
     Indication: PNEUMONIA
     Dosage: DAILY DOSE .25 MG
     Route: 041
     Dates: start: 20110204
  4. GASTER [Concomitant]
     Dosage: 10 MG, QD
     Route: 048
  5. BASEN [Suspect]
     Dosage: 0.2 MG, TID
     Route: 048
     Dates: start: 20110215
  6. ADRENAL CORTICAL EXTRACT [Concomitant]
     Indication: MULTIPLE MYELOMA
     Dosage: UNK
     Route: 065
  7. CIPROFLOXACIN HCL [Interacting]
     Indication: PNEUMONIA
     Dosage: 200 MG, QD
     Route: 041
     Dates: start: 20110208
  8. BASEN [Suspect]
     Indication: DIABETES MELLITUS
     Dosage: 0.2 MG, TID
     Route: 048
     Dates: start: 20070401, end: 20110211

REACTIONS (1)
  - HYPOGLYCAEMIA [None]
